FAERS Safety Report 19098908 (Version 1)
Quarter: 2021Q2

REPORT INFORMATION
  Report Type: Spontaneous
  Country: PT (occurrence: PT)
  Receive Date: 20210406
  Receipt Date: 20210406
  Transmission Date: 20210717
  Serious: Yes (Hospitalization, Other)
  Sender: FDA-Public Use
  Company Number: PT-CANTON LABORATORIES, LLC-2108970

PATIENT
  Age: 70 Year
  Sex: Male

DRUGS (10)
  1. TRAZODONE [Concomitant]
     Active Substance: TRAZODONE HYDROCHLORIDE
     Route: 065
  2. DUTASTERIDE. [Concomitant]
     Active Substance: DUTASTERIDE
     Route: 065
  3. TAMSULOSIN HYDROCHLORIDE. [Concomitant]
     Active Substance: TAMSULOSIN HYDROCHLORIDE
     Route: 065
  4. NAPROSYN [Suspect]
     Active Substance: NAPROXEN
     Indication: PRODUCT USED FOR UNKNOWN INDICATION
     Route: 065
  5. PIKETOPROFEN. [Suspect]
     Active Substance: PIKETOPROFEN
     Route: 065
  6. SIMVASTATIN. [Concomitant]
     Active Substance: SIMVASTATIN
     Route: 065
  7. VERAPAMIL [Concomitant]
     Active Substance: VERAPAMIL HYDROCHLORIDE
     Route: 065
  8. ACETYLSALICYLIC ACID [Suspect]
     Active Substance: ASPIRIN
     Route: 065
  9. ALPRAZOLAM. [Concomitant]
     Active Substance: ALPRAZOLAM
     Route: 065
  10. GLUCOSAMINE [Suspect]
     Active Substance: GLUCOSAMINE
     Route: 065

REACTIONS (4)
  - Haemodynamic instability [Recovered/Resolved]
  - Gastric ulcer [Recovered/Resolved]
  - Adenocarcinoma gastric [Recovered/Resolved]
  - Gastrointestinal haemorrhage [Recovered/Resolved]
